FAERS Safety Report 19271314 (Version 2)
Quarter: 2021Q3

REPORT INFORMATION
  Report Type: Report from Study
  Country: US (occurrence: US)
  Receive Date: 20210518
  Receipt Date: 20210811
  Transmission Date: 20211014
  Serious: Yes (Other)
  Sender: FDA-Public Use
  Company Number: US-EMD SERONO-9237818

PATIENT
  Age: 29 Year
  Sex: Female

DRUGS (3)
  1. REBIF [Suspect]
     Active Substance: INTERFERON BETA-1A
     Route: 058
  2. IBUPROFEN. [Concomitant]
     Active Substance: IBUPROFEN
     Indication: OPTIC NEURITIS
  3. REBIF [Suspect]
     Active Substance: INTERFERON BETA-1A
     Indication: RELAPSING-REMITTING MULTIPLE SCLEROSIS
     Route: 058
     Dates: start: 20161018

REACTIONS (7)
  - Eye pain [Unknown]
  - Dizziness [Unknown]
  - Hemianaesthesia [Unknown]
  - Disorientation [Unknown]
  - Facial paralysis [Recovering/Resolving]
  - Vertigo positional [Unknown]
  - Nausea [Unknown]

NARRATIVE: CASE EVENT DATE: 202105
